FAERS Safety Report 8763019 (Version 2)
Quarter: 2012Q4

REPORT INFORMATION
  Report Type: Spontaneous
  Country: US (occurrence: None)
  Receive Date: 20120824
  Receipt Date: 20121009
  Transmission Date: 20130627
  Serious: Yes (Hospitalization)
  Sender: FDA-Public Use
  Company Number: UTC-022205

PATIENT
  Age: 47 Year
  Sex: Female
  Weight: 53.09 kg

DRUGS (5)
  1. REMODULIN [Suspect]
     Indication: CHRONIC PULMONARY HEART DISEASE
     Dosage: 2.88 ug/kg (0.002 ug/kg, 1 in 1 min), Subcutaneous
     Route: 058
     Dates: start: 20120613, end: 201209
  2. REMODULIN [Suspect]
     Indication: PAH
     Dosage: 2.88 ug/kg (0.002 ug/kg, 1 in 1 min), Subcutaneous
     Route: 058
     Dates: start: 20120613, end: 201209
  3. REMODULIN [Suspect]
     Indication: CHRONIC PULMONARY HEART DISEASE
     Route: 058
     Dates: start: 201209
  4. REMODULIN [Suspect]
     Indication: PAH
     Route: 058
     Dates: start: 201209
  5. ADCIRCA [Concomitant]

REACTIONS (7)
  - Ascites [None]
  - Weight increased [None]
  - Decreased appetite [None]
  - Fluid retention [None]
  - Hypotension [None]
  - Hypertension [None]
  - Pneumonia [None]
